FAERS Safety Report 7792281-1 (Version None)
Quarter: 2011Q4

REPORT INFORMATION
  Report Type: 
  Country: None (occurrence: None)
  Receive Date: 20111003
  Receipt Date: 20110928
  Transmission Date: 20120403
  Serious: Yes (Death, Hospitalization, Other)
  Sender: FDA-Public Use
  Company Number: FR-PFIZER INC-2008100575

PATIENT
  Age: 81 Year
  Sex: Female

DRUGS (9)
  1. MICARDIS HCT [Suspect]
     Dosage: 80MG/12.5MG
     Dates: start: 20080506, end: 20081120
  2. ROSUVASTATIN [Concomitant]
  3. LEVOTHYROXINE [Concomitant]
  4. ASPIRIN [Concomitant]
  5. LYRICA [Suspect]
     Indication: NEURALGIA
     Route: 048
     Dates: start: 20081108, end: 20081117
  6. MICARDIS HCT [Concomitant]
  7. BETAXOLOL [Concomitant]
  8. ACETAMINOPHEN WITH PROPOXYPHENE HCL TAB [Suspect]
     Route: 048
     Dates: start: 20081108, end: 20081117
  9. DEXTROPROPOXYPHENE HYDROCHLORIDE [Concomitant]
     Dates: start: 20081108

REACTIONS (7)
  - CONFUSIONAL STATE [None]
  - COMA [None]
  - HYPONATRAEMIA [None]
  - AGITATION [None]
  - BLOOD CREATINE PHOSPHOKINASE INCREASED [None]
  - BLOOD CREATININE INCREASED [None]
  - DELIRIUM [None]
